FAERS Safety Report 8085249-1 (Version None)
Quarter: 2012Q1

REPORT INFORMATION
  Report Type: 
  Country: None (occurrence: None)
  Receive Date: 20120128
  Receipt Date: 20110321
  Transmission Date: 20120608
  Serious: No
  Sender: FDA-Public Use
  Company Number: US-ABBOTT-11P-163-0713269-00

PATIENT
  Age: 49 Year
  Sex: Male

DRUGS (7)
  1. LORTAB [Concomitant]
     Indication: PRODUCT USED FOR UNKNOWN INDICATION
  2. HUMIRA [Suspect]
  3. WARFARIN SODIUM [Concomitant]
     Indication: PRODUCT USED FOR UNKNOWN INDICATION
     Dosage: 5MG 1 DAY AND 2.5 THE NEXT
  4. HUMIRA [Suspect]
     Indication: CROHN'S DISEASE
     Dates: start: 20110305, end: 20110305
  5. HUMIRA [Suspect]
     Dates: start: 20110319, end: 20110319
  6. FOLIC ACID [Concomitant]
     Indication: PRODUCT USED FOR UNKNOWN INDICATION
  7. METHOTREXATE [Concomitant]
     Indication: PRODUCT USED FOR UNKNOWN INDICATION

REACTIONS (3)
  - FATIGUE [None]
  - JOINT LOCK [None]
  - PAIN IN EXTREMITY [None]
